FAERS Safety Report 4550651-9 (Version None)
Quarter: 2004Q4

REPORT INFORMATION
  Report Type: 
  Country: None (occurrence: None)
  Receive Date: 20041227
  Receipt Date: 20040903
  Transmission Date: 20050328
  Serious: No
  Sender: FDA-Public Use
  Company Number: 04P-163-0272394-00

PATIENT
  Age: 47 Year
  Sex: Male
  Weight: 79.3795 kg

DRUGS (8)
  1. HUMIRA [Suspect]
     Indication: RHEUMATOID ARTHRITIS
     Dosage: 40 MG, 1 IN 2 WK, SUBCUTANEOUS
     Route: 058
     Dates: start: 20031001, end: 20040210
  2. HUMIRA [Suspect]
     Indication: RHEUMATOID ARTHRITIS
     Dosage: 40 MG, 1 IN 2 WK, SUBCUTANEOUS
     Route: 058
     Dates: start: 20040211, end: 20040601
  3. BLOOD PRESSURE PILLS [Concomitant]
  4. PREDNISONE [Concomitant]
  5. NSAIDS [Concomitant]
  6. AMITRIPTYLINE [Concomitant]
  7. VALPROATE SEMISODIUIM [Concomitant]
  8. SERTRALINE HYDROCHLORIDE [Concomitant]

REACTIONS (3)
  - BLOOD CREATININE INCREASED [None]
  - DRUG EFFECT DECREASED [None]
  - LOCALISED INFECTION [None]
